FAERS Safety Report 15689240 (Version 1)
Quarter: 2018Q4

REPORT INFORMATION
  Report Type: Report from Study
  Country: CA (occurrence: CA)
  Receive Date: 20181205
  Receipt Date: 20181205
  Transmission Date: 20190205
  Serious: Yes (Other)
  Sender: FDA-Public Use
  Company Number: CA-TEVA-2018-CA-981506

PATIENT
  Age: 62 Year
  Sex: Male
  Weight: 93 kg

DRUGS (14)
  1. SAXENDA [Suspect]
     Active Substance: LIRAGLUTIDE
     Dosage: 3 MILLIGRAM DAILY;
     Route: 058
  2. TELMISARTAN. [Concomitant]
     Active Substance: TELMISARTAN
  3. LIPITOR [Concomitant]
     Active Substance: ATORVASTATIN CALCIUM
  4. NIFEDIPINE. [Concomitant]
     Active Substance: NIFEDIPINE
  5. VITAMIN D [Concomitant]
     Active Substance: CHOLECALCIFEROL
  6. BUPROPION. [Suspect]
     Active Substance: BUPROPION
     Dosage: 2 DOSAGE FORMS DAILY;
     Route: 065
  7. SAXENDA [Suspect]
     Active Substance: LIRAGLUTIDE
     Indication: WEIGHT CONTROL
     Route: 058
  8. ALLOPURINOL. [Concomitant]
     Active Substance: ALLOPURINOL
  9. BUPROPION. [Suspect]
     Active Substance: BUPROPION
     Indication: WEIGHT DECREASED
     Route: 065
  10. SAXENDA [Suspect]
     Active Substance: LIRAGLUTIDE
     Dosage: 3 MILLIGRAM DAILY;
     Route: 058
  11. BISOPROLOL [Concomitant]
     Active Substance: BISOPROLOL
  12. FLOMAX [Concomitant]
     Active Substance: TAMSULOSIN HYDROCHLORIDE
  13. BUPROPION. [Suspect]
     Active Substance: BUPROPION
     Route: 065
  14. DEXILANT [Concomitant]
     Active Substance: DEXLANSOPRAZOLE

REACTIONS (4)
  - Vomiting [Unknown]
  - Dizziness [Unknown]
  - Incorrect dose administered [Unknown]
  - Atrial fibrillation [Unknown]
